FAERS Safety Report 7281948-X (Version None)
Quarter: 2011Q1

REPORT INFORMATION
  Report Type: 
  Country: None (occurrence: None)
  Receive Date: 20110128
  Receipt Date: 20110113
  Transmission Date: 20110831
  Serious: Yes (Other)
  Sender: FDA-Public Use
  Company Number: AUR-APL-2011-00238

PATIENT
  Age: 70 Year
  Sex: Female
  Weight: 68.03 kg

DRUGS (3)
  1. LIPITOR [Suspect]
     Indication: BLOOD CHOLESTEROL INCREASED
     Dosage: ORAL
     Route: 048
  2. METOPROLOL [Suspect]
     Indication: HYPERTENSION
  3. FOLIC ACID [Concomitant]

REACTIONS (4)
  - MYOCARDIAL INFARCTION [None]
  - FEELING ABNORMAL [None]
  - HYPERTENSION [None]
  - FATIGUE [None]
